FAERS Safety Report 5390050-3 (Version None)
Quarter: 2007Q3

REPORT INFORMATION
  Report Type: 
  Country: None (occurrence: None)
  Receive Date: 20070718
  Receipt Date: 20070713
  Transmission Date: 20080115
  Serious: Yes (Hospitalization)
  Sender: FDA-Public Use
  Company Number: FR-BRISTOL-MYERS SQUIBB COMPANY-13847058

PATIENT
  Age: 67 Year
  Sex: Male

DRUGS (7)
  1. ELISOR TABS [Suspect]
     Route: 048
  2. ATENOLOL [Suspect]
  3. PREVISCAN [Suspect]
  4. KARDEGIC [Suspect]
  5. ANAFRANIL [Suspect]
  6. ZOPICLONE [Suspect]
  7. PERINDOPRIL ERBUMINE [Suspect]

REACTIONS (1)
  - RECTAL HAEMORRHAGE [None]
